FAERS Safety Report 8439897-7 (Version None)
Quarter: 2012Q2

REPORT INFORMATION
  Report Type: 
  Country: None (occurrence: None)
  Receive Date: 20120615
  Receipt Date: 20120614
  Transmission Date: 20120825
  Serious: Yes (Death, Hospitalization)
  Sender: FDA-Public Use
  Company Number: PHHY2012IN051226

PATIENT
  Sex: Female

DRUGS (1)
  1. ZOLEDRONOC ACID [Suspect]
     Indication: OSTEOPOROSIS
     Dosage: 5 MG, UNK
     Route: 042
     Dates: start: 20120106

REACTIONS (9)
  - GASTRIC ULCER [None]
  - VOMITING [None]
  - ABDOMINAL DISTENSION [None]
  - OVARIAN CANCER [None]
  - GENERAL PHYSICAL HEALTH DETERIORATION [None]
  - CARDIAC DISORDER [None]
  - BACK PAIN [None]
  - ABDOMINAL INFECTION [None]
  - DYSPNOEA [None]
